FAERS Safety Report 5506723-5 (Version None)
Quarter: 2007Q4

REPORT INFORMATION
  Report Type: 
  Country: None (occurrence: None)
  Receive Date: 20071105
  Receipt Date: 20071026
  Transmission Date: 20080405
  Serious: Yes (Hospitalization, Other)
  Sender: FDA-Public Use
  Company Number: CA-ELI_LILLY_AND_COMPANY-CA200710007359

PATIENT
  Sex: Male

DRUGS (16)
  1. HUMULIN 70/30 [Suspect]
     Indication: DIABETES MELLITUS
     Dosage: 110 U, UNKNOWN
  2. HUMULIN 70/30 [Suspect]
     Dosage: 100 U, AS NEEDED
  3. AMITRIPTYLINE HCL [Concomitant]
     Indication: NEUROPATHY
     Dosage: 50 MG, EACH EVENING
     Route: 048
  4. ASPIRIN [Concomitant]
     Indication: ANTICOAGULANT THERAPY
     Dosage: 81 MG, DAILY (1/D)
     Route: 048
     Dates: start: 20070701
  5. CALCIUM CARBONATE + VITAMIN D [Concomitant]
     Dosage: 500 MG, 3/D
     Route: 048
     Dates: start: 20070701
  6. COZAAR [Concomitant]
     Indication: HYPERTENSION
     Dosage: 50 MG, DAILY (1/D)
     Route: 048
  7. APO-FUROSEMIDE [Concomitant]
     Indication: DIURETIC THERAPY
     Dosage: 40 MG, EACH MORNING
     Route: 048
     Dates: start: 20070701
  8. LIPITOR [Concomitant]
     Indication: BLOOD CHOLESTEROL
     Dosage: 10 MG, DAILY (1/D)
     Route: 048
  9. LIPITOR [Concomitant]
     Dosage: 20 MG, DAILY (1/D)
     Route: 048
  10. NEXIUM [Concomitant]
     Indication: GASTROOESOPHAGEAL REFLUX DISEASE
     Dosage: 40 MG, DAILY (1/D)
     Route: 048
     Dates: start: 19970101
  11. OXAZEPAM [Concomitant]
     Dosage: 15 MG, AS NEEDED
     Route: 048
     Dates: start: 20070701
  12. OXAZEPAM [Concomitant]
     Dosage: 30 MG, AS NEEDED
     Route: 048
     Dates: start: 20070701
  13. FELODIPINE [Concomitant]
     Indication: HYPERTENSION
     Dosage: 10 MG, DAILY (1/D)
     Route: 048
  14. POTASSIUM CHLORIDE [Concomitant]
     Dosage: UNK, DAILY (1/D)
     Route: 048
     Dates: end: 20071001
  15. VASOTEC [Concomitant]
     Indication: HYPERTENSION
     Dosage: 20 MG, 2/D
     Route: 048
  16. ALBUTEROL [Concomitant]
     Indication: ASTHMA
     Dosage: 200 UG, AS NEEDED
     Route: 055
     Dates: start: 20070901

REACTIONS (8)
  - BLOOD GLUCOSE DECREASED [None]
  - BLOOD GLUCOSE INCREASED [None]
  - CARDIAC FAILURE [None]
  - HYPOACUSIS [None]
  - PNEUMONIA [None]
  - RENAL FAILURE [None]
  - SEPSIS [None]
  - SKIN ULCER [None]
